FAERS Safety Report 16649365 (Version 1)
Quarter: 2019Q3

REPORT INFORMATION
  Report Type: Report from Study
  Country: US (occurrence: US)
  Receive Date: 20190730
  Receipt Date: 20190730
  Transmission Date: 20191004
  Serious: No
  Sender: FDA-Public Use
  Company Number: PHEH2019US031185

PATIENT
  Age: 41 Year
  Sex: Female

DRUGS (1)
  1. COSENTYX [Suspect]
     Active Substance: SECUKINUMAB
     Indication: PSORIASIS
     Dosage: 300 MG, QMO
     Route: 058
     Dates: start: 20190301, end: 20190601

REACTIONS (6)
  - Depression [Recovering/Resolving]
  - Weight increased [Recovering/Resolving]
  - Pruritus [Recovering/Resolving]
  - Fatigue [Recovering/Resolving]
  - Temperature intolerance [Recovering/Resolving]
  - Vision blurred [Not Recovered/Not Resolved]

NARRATIVE: CASE EVENT DATE: 201903
